FAERS Safety Report 9849829 (Version 1)
Quarter: 2014Q1

REPORT INFORMATION
  Report Type: Spontaneous
  Country: US (occurrence: US)
  Receive Date: 20140128
  Receipt Date: 20140128
  Transmission Date: 20141002
  Serious: Yes (Hospitalization, Other)
  Sender: FDA-Public Use
  Company Number: US-PFIZER INC-2014023287

PATIENT
  Age: 47 Year
  Sex: Female
  Weight: 70.3 kg

DRUGS (1)
  1. ETHINYLESTRADIOL/LEVONORGESTREL [Suspect]
     Indication: CONTRACEPTION
     Dosage: UNK
     Dates: end: 20120420

REACTIONS (8)
  - Myocardial infarction [Unknown]
  - Coronary artery occlusion [Unknown]
  - Cerebrovascular accident [Unknown]
  - Abasia [Recovered/Resolved]
  - Hypertension [Unknown]
  - Hypoaesthesia [Not Recovered/Not Resolved]
  - Dysgraphia [Not Recovered/Not Resolved]
  - Blood cholesterol increased [Unknown]
